FAERS Safety Report 9729048 (Version 1)
Quarter: 2013Q4

REPORT INFORMATION
  Report Type: Report from Study
  Country: BR (occurrence: BR)
  Receive Date: 20131204
  Receipt Date: 20131204
  Transmission Date: 20140711
  Serious: Yes (Other)
  Sender: FDA-Public Use
  Company Number: PHHY2013BR141237

PATIENT
  Sex: Male
  Weight: 80 kg

DRUGS (3)
  1. DIOVAN [Suspect]
     Indication: HYPERTENSION
     Dosage: 1 UKN(320MG), DAILY
     Route: 048
     Dates: start: 1980
  2. DIOVAN [Suspect]
     Dosage: 1 UKN(160MG), IN THE MORNING AND AT NIGHT)
     Dates: start: 1986
  3. DIOVAN [Suspect]
     Dosage: UNK UKN(80MG), UNK

REACTIONS (3)
  - Cerebrovascular accident [Recovered/Resolved]
  - Discomfort [Recovered/Resolved]
  - Blood pressure decreased [Recovered/Resolved]
